FAERS Safety Report 15590829 (Version 6)
Quarter: 2019Q3

REPORT INFORMATION
  Report Type: Spontaneous
  Country: US (occurrence: US)
  Receive Date: 20181107
  Receipt Date: 20190709
  Transmission Date: 20191004
  Serious: No
  Sender: FDA-Public Use
  Company Number: US-PFIZER INC-2018458199

PATIENT
  Age: 53 Year
  Sex: Female

DRUGS (1)
  1. XELJANZ XR [Suspect]
     Active Substance: TOFACITINIB CITRATE
     Dosage: 11 MG, 1X/DAY
     Route: 048
     Dates: start: 201810

REACTIONS (7)
  - Herpes zoster [Unknown]
  - Immune system disorder [Unknown]
  - Gait disturbance [Unknown]
  - Dyspepsia [Unknown]
  - Malaise [Unknown]
  - Nasopharyngitis [Unknown]
  - Arthritis [Unknown]

NARRATIVE: CASE EVENT DATE: 201812
